FAERS Safety Report 25792918 (Version 2)
Quarter: 2025Q3

REPORT INFORMATION
  Report Type: Spontaneous
  Country: CA (occurrence: CA)
  Receive Date: 20250911
  Receipt Date: 20250929
  Transmission Date: 20251020
  Serious: Yes (Other)
  Sender: AMERICAN REGENT
  Company Number: CA-AMERICAN REGENT INC-2025003424

PATIENT
  Age: 47 Year
  Sex: Female

DRUGS (1)
  1. VENOFER [Suspect]
     Active Substance: IRON SUCROSE
     Indication: Iron deficiency anaemia
     Dates: start: 20250511, end: 20250511

REACTIONS (2)
  - Erythema [Recovered/Resolved]
  - Skin burning sensation [Recovered/Resolved]

NARRATIVE: CASE EVENT DATE: 20250511
